FAERS Safety Report 22946238 (Version 2)
Quarter: 2023Q4

REPORT INFORMATION
  Report Type: Report from Study
  Country: US (occurrence: US)
  Receive Date: 20230915
  Receipt Date: 20231109
  Transmission Date: 20240110
  Serious: No
  Sender: FDA-Public Use
  Company Number: US-SA-SAC20230913001361

PATIENT
  Age: 27 Year
  Sex: Male

DRUGS (1)
  1. DUPIXENT [Suspect]
     Active Substance: DUPILUMAB
     Indication: Eosinophilic oesophagitis
     Dosage: 300 MG, QW
     Route: 058
     Dates: start: 20230724

REACTIONS (2)
  - Injection site reaction [Not Recovered/Not Resolved]
  - Injection site bruising [Unknown]

NARRATIVE: CASE EVENT DATE: 20230101
